FAERS Safety Report 7512159-8 (Version None)
Quarter: 2011Q2

REPORT INFORMATION
  Report Type: 
  Country: None (occurrence: None)
  Receive Date: 20110531
  Receipt Date: 20110510
  Transmission Date: 20111010
  Serious: No
  Sender: FDA-Public Use
  Company Number: US-B.I. PHARMACEUTICALS,INC./RIDGEFIELD-2011-BP-09976BP

PATIENT
  Sex: Male

DRUGS (6)
  1. LOTREL [Concomitant]
     Indication: HYPERTENSION
  2. PRADAXA [Suspect]
     Indication: ATRIAL FIBRILLATION
     Dosage: 300 MG
     Route: 048
     Dates: start: 20110328
  3. FLONASE [Concomitant]
     Indication: SEASONAL ALLERGY
  4. NEXIUM [Concomitant]
     Indication: ULCER
  5. FLOMAX [Concomitant]
     Indication: BENIGN PROSTATIC HYPERPLASIA
  6. AVODART [Concomitant]
     Indication: BENIGN PROSTATIC HYPERPLASIA

REACTIONS (4)
  - DYSPEPSIA [None]
  - GASTRITIS [None]
  - ERUCTATION [None]
  - ABDOMINAL DISCOMFORT [None]
